FAERS Safety Report 22104706 (Version 4)
Quarter: 2023Q1

REPORT INFORMATION
  Report Type: Spontaneous
  Country: ES (occurrence: ES)
  Receive Date: 20230316
  Receipt Date: 20230323
  Transmission Date: 20230418
  Serious: Yes (Death, Hospitalization, Other)
  Sender: FDA-Public Use
  Company Number: ES-009507513-2303ESP000464

PATIENT
  Age: 66 Year
  Sex: Female
  Weight: 48 kg

DRUGS (9)
  1. PEMBROLIZUMAB [Suspect]
     Active Substance: PEMBROLIZUMAB
     Indication: Colorectal cancer metastatic
     Dosage: 200MG
     Route: 042
     Dates: start: 20221202
  2. PEMBROLIZUMAB [Suspect]
     Active Substance: PEMBROLIZUMAB
     Dosage: 200MG
     Route: 042
     Dates: start: 20221223
  3. PEMBROLIZUMAB [Suspect]
     Active Substance: PEMBROLIZUMAB
     Dosage: 200MG
     Route: 042
     Dates: start: 20230112
  4. NALOXONE HYDROCHLORIDE\OXYCODONE HYDROCHLORIDE [Concomitant]
     Active Substance: NALOXONE HYDROCHLORIDE\OXYCODONE HYDROCHLORIDE
     Dosage: 1-0-1
  5. EMPAGLIFLOZIN\METFORMIN HYDROCHLORIDE [Concomitant]
     Active Substance: EMPAGLIFLOZIN\METFORMIN HYDROCHLORIDE
     Dosage: 1-0-1
  6. TOUJEO [Concomitant]
     Active Substance: INSULIN GLARGINE
     Dosage: 8-10 IU 1-0-0
  7. PAROXETINE [Concomitant]
     Active Substance: PAROXETINE
     Dosage: 1-0-0
  8. METAMIZOLE [Concomitant]
     Active Substance: METAMIZOLE
     Dosage: IF REQUIRED
  9. ACETAMINOPHEN [Concomitant]
     Active Substance: ACETAMINOPHEN
     Dosage: IF REQUIRED

REACTIONS (9)
  - Malignant neoplasm progression [Fatal]
  - Leukocytosis [Unknown]
  - Splenic infarction [Unknown]
  - Drug ineffective [Unknown]
  - Bladder disorder [Unknown]
  - Dysuria [Unknown]
  - Red blood cell anisocytes present [Unknown]
  - Monocyte morphology abnormal [Unknown]
  - Platelet anisocytosis [Unknown]

NARRATIVE: CASE EVENT DATE: 20230101
